FAERS Safety Report 19605256 (Version 3)
Quarter: 2021Q3

REPORT INFORMATION
  Report Type: Report from Study
  Country: None (occurrence: US)
  Receive Date: 20210723
  Receipt Date: 20210811
  Transmission Date: 20211014
  Serious: Yes (Other)
  Sender: FDA-Public Use
  Company Number: US-ABBVIE-21K-163-4001736-00

PATIENT
  Sex: Male

DRUGS (6)
  1. IMBRUVICA [Suspect]
     Active Substance: IBRUTINIB
     Route: 048
     Dates: start: 2021, end: 2021
  2. ELIQUIS [Concomitant]
     Active Substance: APIXABAN
     Indication: PRODUCT USED FOR UNKNOWN INDICATION
  3. IMBRUVICA [Suspect]
     Active Substance: IBRUTINIB
     Route: 048
  4. IMBRUVICA [Suspect]
     Active Substance: IBRUTINIB
     Indication: CHRONIC LYMPHOCYTIC LEUKAEMIA
     Dosage: 420 MG
     Route: 048
     Dates: start: 20210101
  5. IMBRUVICA [Suspect]
     Active Substance: IBRUTINIB
     Dosage: DOSE INCREASED
     Route: 048
     Dates: start: 20210721
  6. IMBRUVICA [Suspect]
     Active Substance: IBRUTINIB
     Route: 048

REACTIONS (11)
  - Fatigue [Not Recovered/Not Resolved]
  - Pulmonary oedema [Not Recovered/Not Resolved]
  - Platelet count abnormal [Unknown]
  - Abdominal distension [Not Recovered/Not Resolved]
  - Haemorrhage [Unknown]
  - Lymphadenopathy [Unknown]
  - Insomnia [Not Recovered/Not Resolved]
  - White blood cell count abnormal [Unknown]
  - Parkinson^s disease [Not Recovered/Not Resolved]
  - Haemoglobin abnormal [Unknown]
  - Haemorrhage urinary tract [Unknown]
